FAERS Safety Report 10668578 (Version 1)
Quarter: 2014Q4

REPORT INFORMATION
  Report Type: Spontaneous
  Country: GB (occurrence: GB)
  Receive Date: 20141222
  Receipt Date: 20141222
  Transmission Date: 20150529
  Serious: Yes (Other)
  Sender: FDA-Public Use
  Company Number: PHHY2014GB162938

PATIENT
  Age: 69 Year
  Sex: Female

DRUGS (6)
  1. FYBOGEL [Concomitant]
     Active Substance: PLANTAGO OVATA SEED
  2. PREDNISOLONE. [Concomitant]
     Active Substance: PREDNISOLONE
  3. TIOTROPIUM [Concomitant]
     Active Substance: TIOTROPIUM
     Route: 055
  4. FOSTAIR [Concomitant]
     Active Substance: BECLOMETHASONE\FORMOTEROL
     Route: 055
  5. CEFTRIAXONE. [Suspect]
     Active Substance: CEFTRIAXONE
     Indication: PNEUMONIA BACTERIAL
     Dosage: 2 G, UNK
     Route: 042
     Dates: start: 20141120, end: 20141127
  6. SALBUTAMOL [Concomitant]
     Active Substance: ALBUTEROL
     Route: 055

REACTIONS (6)
  - Dizziness [Recovered/Resolved]
  - Dyspnoea [Recovered/Resolved]
  - Chest discomfort [Recovered/Resolved]
  - Flushing [Recovered/Resolved]
  - Sweat gland disorder [Recovered/Resolved]
  - Paraesthesia oral [Recovered/Resolved]

NARRATIVE: CASE EVENT DATE: 20141127
